FAERS Safety Report 5334193-9 (Version None)
Quarter: 2007Q2

REPORT INFORMATION
  Report Type: 
  Country: None (occurrence: None)
  Receive Date: 20070523
  Receipt Date: 20070523
  Transmission Date: 20071010
  Serious: Yes (Other)
  Sender: FDA-Public Use
  Company Number: None

PATIENT
  Sex: Female
  Weight: 78.9259 kg

DRUGS (1)
  1. PROZAC [Suspect]
     Indication: DEPRESSION
     Dosage: 60MG DAILY PO
     Route: 048
     Dates: start: 20070417, end: 20070502

REACTIONS (5)
  - HEADACHE [None]
  - HYPERREFLEXIA [None]
  - MUSCLE TWITCHING [None]
  - MYOCLONUS [None]
  - TEMPERATURE INTOLERANCE [None]
